FAERS Safety Report 6336212-X (Version None)
Quarter: 2009Q3

REPORT INFORMATION
  Report Type: 
  Country: None (occurrence: None)
  Receive Date: 20090901
  Receipt Date: 20090826
  Transmission Date: 20100115
  Serious: Yes (Hospitalization)
  Sender: FDA-Public Use
  Company Number: JP-BRISTOL-MYERS SQUIBB COMPANY-14758635

PATIENT
  Age: 69 Year
  Sex: Female
  Weight: 26 kg

DRUGS (11)
  1. ERBITUX [Suspect]
     Indication: COLON CANCER
     Route: 042
     Dates: start: 20090723, end: 20090723
  2. TOPOTECIN [Concomitant]
     Indication: COLON CANCER
     Route: 042
     Dates: start: 20090723, end: 20090723
  3. POLARAMINE [Concomitant]
     Indication: PREMEDICATION
     Route: 042
     Dates: start: 20090723, end: 20090723
  4. DECADRON [Concomitant]
     Indication: PREMEDICATION
     Route: 042
     Dates: start: 20090723, end: 20090723
  5. PRIMPERAN [Concomitant]
     Indication: ANTIEMETIC SUPPORTIVE CARE
     Route: 048
  6. PROMAC [Concomitant]
     Dosage: PROMAC D
     Route: 048
  7. GASMOTIN [Concomitant]
     Dosage: TAB
     Route: 048
  8. AMARYL [Concomitant]
     Dosage: TAB
     Route: 048
  9. MAGNESIUM OXIDE [Concomitant]
     Route: 048
  10. TAKEPRON [Concomitant]
     Dosage: TAB
     Route: 048
  11. HOCHU-EKKI-TO [Concomitant]
     Route: 048

REACTIONS (2)
  - HYPONATRAEMIA [None]
  - MELAENA [None]
